FAERS Safety Report 24220910 (Version 1)
Quarter: 2024Q3

REPORT INFORMATION
  Report Type: Spontaneous
  Country: US (occurrence: US)
  Receive Date: 20240819
  Receipt Date: 20240819
  Transmission Date: 20241017
  Serious: Yes (Other)
  Sender: STRIDES
  Company Number: US-STRIDES ARCOLAB LIMITED-2024SP009913

PATIENT
  Age: 5 Decade
  Sex: Female

DRUGS (4)
  1. METHOTREXATE [Suspect]
     Active Substance: METHOTREXATE
     Indication: Neurodermatitis
     Dosage: UNK
     Route: 048
  2. CYCLOSPORINE [Suspect]
     Active Substance: CYCLOSPORINE
     Indication: Neurodermatitis
     Dosage: UNK
     Route: 065
  3. CALCIPOTRIENE [Suspect]
     Active Substance: CALCIPOTRIENE
     Indication: Neurodermatitis
     Dosage: UNK
     Route: 065
  4. CAPSAICIN [Suspect]
     Active Substance: CAPSAICIN
     Indication: Neurodermatitis
     Dosage: UNK
     Route: 065

REACTIONS (2)
  - Therapy non-responder [Unknown]
  - Off label use [Unknown]
